FAERS Safety Report 26030891 (Version 1)
Quarter: 2025Q4

REPORT INFORMATION
  Report Type: Spontaneous
  Country: AU (occurrence: AU)
  Receive Date: 20251112
  Receipt Date: 20251112
  Transmission Date: 20260118
  Serious: Yes (Other)
  Sender: AUROBINDO
  Company Number: AU-AUROBINDO-AUR-APL-2025-055135

PATIENT
  Age: 48 Year
  Sex: Female

DRUGS (1)
  1. CARBOPLATIN [Suspect]
     Active Substance: CARBOPLATIN
     Indication: Product used for unknown indication
     Dosage: UNK
     Route: 065

REACTIONS (11)
  - Electrocardiogram T wave inversion [Unknown]
  - Vomiting [Unknown]
  - Chest discomfort [Unknown]
  - Cough [Unknown]
  - Dyspnoea [Unknown]
  - Flushing [Unknown]
  - Hyperhidrosis [Unknown]
  - Paraesthesia [Unknown]
  - Rhinorrhoea [Unknown]
  - Sinus tachycardia [Unknown]
  - Throat irritation [Unknown]
